FAERS Safety Report 22013658 (Version 1)
Quarter: 2023Q1

REPORT INFORMATION
  Report Type: Other
  Country: DE (occurrence: None)
  Receive Date: 20230220
  Receipt Date: 20230220
  Transmission Date: 20230418
  Serious: Yes (Hospitalization)
  Sender: FDA-Public Use
  Company Number: DE-ROCHE-3289549

PATIENT
  Age: 71 Year
  Sex: Female
  Weight: 67 kg

DRUGS (2)
  1. OCRELIZUMAB [Suspect]
     Active Substance: OCRELIZUMAB
     Indication: Relapsing multiple sclerosis
     Route: 042
     Dates: start: 20181025, end: 20181108
  2. OCRELIZUMAB [Suspect]
     Active Substance: OCRELIZUMAB
     Route: 042
     Dates: start: 20190509

REACTIONS (2)
  - Femoral neck fracture [Recovered/Resolved with Sequelae]
  - COVID-19 [Recovered/Resolved]

NARRATIVE: CASE EVENT DATE: 20230114
